FAERS Safety Report 5163617-5 (Version None)
Quarter: 2006Q4

REPORT INFORMATION
  Report Type: 
  Country: None (occurrence: None)
  Receive Date: 20061127
  Receipt Date: 20061127
  Transmission Date: 20070319
  Serious: Yes (Hospitalization)
  Sender: FDA-Public Use
  Company Number: None

PATIENT
  Age: 44 Year
  Sex: Female
  Weight: 80 kg

DRUGS (1)
  1. ADRIAMYCIN (DOXORUBICIN) - PHARMACIA + UPJOHN [Suspect]
     Indication: BREAST CANCER

REACTIONS (1)
  - CARDIOMYOPATHY [None]
